FAERS Safety Report 9188885 (Version 5)
Quarter: 2014Q1

REPORT INFORMATION
  Report Type: Report from Study
  Country: AU (occurrence: AU)
  Receive Date: 20130326
  Receipt Date: 20140327
  Transmission Date: 20141002
  Serious: Yes (Hospitalization)
  Sender: FDA-Public Use
  Company Number: AU-TEVA-394301USA

PATIENT
  Age: 35 Year
  Sex: Female
  Weight: 88.6 kg

DRUGS (16)
  1. BENDAMUSTINE [Suspect]
     Indication: NON-HODGKIN^S LYMPHOMA UNSPECIFIED HISTOLOGY INDOLENT
     Route: 042
     Dates: start: 20111212
  2. OBINUTUZUMAB [Suspect]
     Indication: NON-HODGKIN^S LYMPHOMA UNSPECIFIED HISTOLOGY INDOLENT
     Dosage: 16.6667 MG/ML DAILY;
     Route: 042
     Dates: start: 20111212
  3. OBINUTUZUMAB [Suspect]
     Dosage: 16.6667 MG/ML DAILY;
     Route: 042
     Dates: start: 20130305
  4. LOGYNON ED [Concomitant]
     Indication: CONTRACEPTION
     Dates: start: 2009, end: 201209
  5. PARACETAMOL [Concomitant]
     Indication: PROPHYLAXIS
     Dates: start: 20111212
  6. PARACETAMOL [Concomitant]
     Indication: ARTHRALGIA
     Dates: start: 20130210, end: 20130217
  7. PARACETAMOL [Concomitant]
     Indication: ANALGESIC THERAPY
     Dates: start: 20130205
  8. LORATADINE [Concomitant]
     Indication: PROPHYLAXIS
     Dates: start: 20111212
  9. PANADOL [Concomitant]
     Indication: HEADACHE
     Dates: start: 20120312
  10. PANADOL [Concomitant]
     Indication: ANALGESIC THERAPY
     Dates: start: 20130205
  11. NUROFEN [Concomitant]
     Indication: ARTHRALGIA
     Dates: start: 20130210, end: 20130217
  12. CLEXANE [Concomitant]
     Indication: PROPHYLAXIS
     Dates: start: 20130206
  13. METOCLOPRAMIDE [Concomitant]
     Indication: NAUSEA
     Dates: start: 20130206
  14. ENDONE [Concomitant]
     Indication: ANALGESIC THERAPY
     Dates: start: 20130207
  15. COLOXYL WITH SENNA [Concomitant]
     Indication: CONSTIPATION
     Dates: start: 20130207
  16. COLOXYL WITH SENNA [Concomitant]
     Dates: start: 20130313

REACTIONS (1)
  - Hepatitis acute [Recovered/Resolved]
